FAERS Safety Report 25977385 (Version 2)
Quarter: 2025Q4

REPORT INFORMATION
  Report Type: Report from Study
  Country: CA (occurrence: CA)
  Receive Date: 20251030
  Receipt Date: 20251205
  Transmission Date: 20260117
  Serious: Yes (Hospitalization, Other)
  Sender: ABBVIE
  Company Number: CA-ABBVIE-6514394

PATIENT
  Age: 70 Year
  Sex: Male

DRUGS (7)
  1. RINVOQ [Suspect]
     Active Substance: UPADACITINIB
     Indication: Crohn^s disease
     Dosage: TAKING TOTAL 30MG ORALLY ONCE DAILY
     Route: 048
     Dates: start: 20250611
  2. RINVOQ [Suspect]
     Active Substance: UPADACITINIB
     Indication: Crohn^s disease
     Dosage: FORM STRENGTH 15 MG, TAKE 2 TABLETS 30MG ORALLY ONCE DAILY
     Route: 048
  3. FOLIC ACID [Concomitant]
     Active Substance: FOLIC ACID
     Indication: Product used for unknown indication
  4. METHOTREXATE [Concomitant]
     Active Substance: METHOTREXATE
     Indication: Product used for unknown indication
  5. DOXYCYCLINE [Concomitant]
     Active Substance: DOXYCYCLINE
     Indication: Product used for unknown indication
  6. RAMIPRIL [Concomitant]
     Active Substance: RAMIPRIL
     Indication: Product used for unknown indication
  7. HYDROCHLOROTHIAZIDE\RAMIPRIL [Concomitant]
     Active Substance: HYDROCHLOROTHIAZIDE\RAMIPRIL
     Indication: Product used for unknown indication

REACTIONS (40)
  - Confusional state [Recovered/Resolved]
  - Lyme disease [Unknown]
  - Blood sodium decreased [Unknown]
  - Immunodeficiency [Recovered/Resolved]
  - Acute kidney injury [Unknown]
  - Productive cough [Not Recovered/Not Resolved]
  - Epistaxis [Unknown]
  - Night sweats [Unknown]
  - Fatigue [Recovered/Resolved]
  - Pyrexia [Recovered/Resolved]
  - Decreased appetite [Not Recovered/Not Resolved]
  - Malaise [Unknown]
  - Thinking abnormal [Unknown]
  - Viral sepsis [Recovered/Resolved]
  - Haemophagocytic lymphohistiocytosis [Unknown]
  - Leukaemia [Unknown]
  - Lymphoma [Unknown]
  - Pancytopenia [Not Recovered/Not Resolved]
  - Investigation abnormal [Unknown]
  - Hyperhidrosis [Recovered/Resolved]
  - Neuroborreliosis [Recovering/Resolving]
  - Tick-borne viral encephalitis [Unknown]
  - Hypersomnia [Unknown]
  - Sepsis [Unknown]
  - Immunosuppression [Unknown]
  - Thrombocytopenia [Recovered/Resolved]
  - Leukopenia [Recovered/Resolved]
  - Anaemia [Not Recovered/Not Resolved]
  - Vector-borne transmission of infection [Unknown]
  - Lethargy [Unknown]
  - Hypersomnia [Not Recovered/Not Resolved]
  - Confusional state [Unknown]
  - Oxygen saturation decreased [Unknown]
  - Eyelid ptosis [Recovering/Resolving]
  - Skin lesion [Unknown]
  - Jarisch-Herxheimer reaction [Unknown]
  - Atrioventricular block [Unknown]
  - Cardiac disorder [Unknown]
  - Pyrexia [Recovering/Resolving]
  - Memory impairment [Unknown]

NARRATIVE: CASE EVENT DATE: 20250101
